FAERS Safety Report 10041125 (Version 1)
Quarter: 2014Q1

REPORT INFORMATION
  Report Type: Spontaneous
  Country: US (occurrence: None)
  Receive Date: 20140326
  Receipt Date: 20140326
  Transmission Date: 20141002
  Serious: Yes (Other)
  Sender: FDA-Public Use
  Company Number: None

PATIENT
  Age: 36 Year
  Sex: Male

DRUGS (1)
  1. VYVANSE [Suspect]
     Dosage: 1  PO  QAM
     Route: 048
     Dates: start: 20140310

REACTIONS (1)
  - Anxiety [None]
